FAERS Safety Report 21436665 (Version 1)
Quarter: 2022Q4

REPORT INFORMATION
  Report Type: Spontaneous
  Country: US (occurrence: US)
  Receive Date: 20221010
  Receipt Date: 20221010
  Transmission Date: 20230112
  Serious: No
  Sender: FDA-Public Use
  Company Number: US-BAYER-2022A138705

PATIENT
  Age: 4 Year
  Sex: Male

DRUGS (1)
  1. KOGENATE FS [Suspect]
     Active Substance: ANTIHEMOPHILIC FACTOR, HUMAN RECOMBINANT
     Dosage: 630 IU

REACTIONS (2)
  - Cough [Recovered/Resolved]
  - COVID-19 [None]

NARRATIVE: CASE EVENT DATE: 20221001
